FAERS Safety Report 10451729 (Version 1)
Quarter: 2014Q3

REPORT INFORMATION
  Report Type: Report from Study
  Country: US (occurrence: US)
  Receive Date: 20140915
  Receipt Date: 20140915
  Transmission Date: 20150326
  Serious: Yes (Other)
  Sender: FDA-Public Use
  Company Number: US-ROCHE-1460868

PATIENT
  Sex: Male
  Weight: 88.2 kg

DRUGS (5)
  1. NUTROPIN AQ [Suspect]
     Active Substance: SOMATROPIN
     Route: 058
  2. NUTROPIN AQ [Suspect]
     Active Substance: SOMATROPIN
     Indication: GROWTH HORMONE DEFICIENCY
     Route: 058
  3. DDAVP [Concomitant]
     Active Substance: DESMOPRESSIN ACETATE
     Indication: DIABETES INSIPIDUS
     Dosage: 0.3 MG IN THE MORNING AND 0.4MG IN THE EVENING
     Route: 065
  4. LEVOTHYROXINE [Concomitant]
     Active Substance: LEVOTHYROXINE
     Indication: HYPOTHYROIDISM
     Route: 048
  5. NUTROPIN AQ [Suspect]
     Active Substance: SOMATROPIN
     Route: 058
     Dates: start: 20100603, end: 201107

REACTIONS (10)
  - Headache [Unknown]
  - Weight increased [Unknown]
  - Thirst [Unknown]
  - Arthralgia [Unknown]
  - Diarrhoea [Unknown]
  - Vomiting [Unknown]
  - Snoring [Unknown]
  - Pollakiuria [Unknown]
  - Neck pain [Unknown]
  - Pain [Unknown]
